FAERS Safety Report 7077548-7 (Version None)
Quarter: 2010Q4

REPORT INFORMATION
  Report Type: 
  Country: None (occurrence: None)
  Receive Date: 20101101
  Receipt Date: 20101020
  Transmission Date: 20110411
  Serious: Yes (Other)
  Sender: FDA-Public Use
  Company Number: US-PFIZER INC-2010134117

PATIENT
  Sex: Male
  Weight: 40.816 kg

DRUGS (3)
  1. LYRICA [Suspect]
     Indication: CONVULSION
     Dosage: 50 MG, 2X/DAY
     Route: 048
     Dates: start: 20101001
  2. KEPPRA [Concomitant]
     Dosage: UNK
  3. LAMICTAL [Concomitant]
     Dosage: UNK

REACTIONS (5)
  - ABNORMAL BEHAVIOUR [None]
  - FATIGUE [None]
  - MEMORY IMPAIRMENT [None]
  - SOMNOLENCE [None]
  - WHEELCHAIR USER [None]
